FAERS Safety Report 23579868 (Version 5)
Quarter: 2025Q1

REPORT INFORMATION
  Report Type: Spontaneous
  Country: US (occurrence: US)
  Receive Date: 20240229
  Receipt Date: 20250226
  Transmission Date: 20250408
  Serious: Yes (Hospitalization, Other)
  Sender: SANOFI AVENTIS
  Company Number: US-SA-SAC20240227000948

PATIENT
  Age: 46 Year
  Sex: Female
  Weight: 95.2 kg

DRUGS (31)
  1. DUPIXENT [Suspect]
     Active Substance: DUPILUMAB
     Indication: Asthma
     Dosage: 300 MG, QOW
     Route: 058
     Dates: start: 202308
  2. FAMOTIDINE [Concomitant]
     Active Substance: FAMOTIDINE
  3. PREGABALIN [Concomitant]
     Active Substance: PREGABALIN
  4. PREVACID [Concomitant]
     Active Substance: LANSOPRAZOLE
  5. ELIQUIS [Concomitant]
     Active Substance: APIXABAN
  6. TRELEGY ELLIPTA [Concomitant]
     Active Substance: FLUTICASONE FUROATE\UMECLIDINIUM BROMIDE\VILANTEROL TRIFENATATE
  7. THEOPHYLLINE [Concomitant]
     Active Substance: THEOPHYLLINE
     Dosage: UNK, QD
  8. THEOPHYLLINE [Concomitant]
     Active Substance: THEOPHYLLINE
  9. ESCITALOPRAM OXALATE [Concomitant]
     Active Substance: ESCITALOPRAM OXALATE
  10. TYLENOL EXTRA STRENGTH [Concomitant]
     Active Substance: ACETAMINOPHEN
  11. MONTELUKAST SODIUM [Concomitant]
     Active Substance: MONTELUKAST SODIUM
  12. LORATADINE [Concomitant]
     Active Substance: LORATADINE
  13. BUSPIRONE [Concomitant]
     Active Substance: BUSPIRONE HYDROCHLORIDE
  14. LEVOTHYROXINE SODIUM [Concomitant]
     Active Substance: LEVOTHYROXINE SODIUM
  15. VITAMIN B2 [Concomitant]
     Active Substance: RIBOFLAVIN
  16. PROBIOTICS NOS [Concomitant]
     Active Substance: PROBIOTICS NOS
  17. ALBUTEROL SULFATE [Concomitant]
     Active Substance: ALBUTEROL SULFATE
  18. PANTOPRAZOLE SODIUM [Concomitant]
     Active Substance: PANTOPRAZOLE SODIUM
  19. VITAMIN D3 [Concomitant]
     Active Substance: CHOLECALCIFEROL
  20. GABAPENTIN [Concomitant]
     Active Substance: GABAPENTIN
  21. METHOCARBAMOL [Concomitant]
     Active Substance: METHOCARBAMOL
  22. BUSPIRONE HCL [Concomitant]
     Active Substance: BUSPIRONE HYDROCHLORIDE
  23. TYLENOL ARTHRITIS PAIN [Concomitant]
     Active Substance: ACETAMINOPHEN
  24. MELATONIN [Concomitant]
     Active Substance: MELATONIN
  25. ALBUTEROL SULFATE [Concomitant]
     Active Substance: ALBUTEROL SULFATE
  26. THEOPHYLLINE [Concomitant]
     Active Substance: THEOPHYLLINE
  27. OMEGA 3 + VITAMIN D [Concomitant]
  28. CALCIUM\VITAMIN D [Concomitant]
     Active Substance: CALCIUM\VITAMIN D
  29. SUPER CALCIUM + D [Concomitant]
  30. MELATONIN [Concomitant]
     Active Substance: MELATONIN
  31. LEVALBUTEROL [Concomitant]
     Active Substance: LEVALBUTEROL

REACTIONS (14)
  - Atrial fibrillation [Recovering/Resolving]
  - Asthma [Recovering/Resolving]
  - Cough [Unknown]
  - Stress [Unknown]
  - Anxiety [Unknown]
  - Spinal disorder [Not Recovered/Not Resolved]
  - Sleep disorder due to a general medical condition [Not Recovered/Not Resolved]
  - Lung disorder [Unknown]
  - Back pain [Unknown]
  - Insomnia [Unknown]
  - Headache [Not Recovered/Not Resolved]
  - Injection site pain [Unknown]
  - Rash [Not Recovered/Not Resolved]
  - Arthralgia [Not Recovered/Not Resolved]

NARRATIVE: CASE EVENT DATE: 20240101
